FAERS Safety Report 19903784 (Version 1)
Quarter: 2021Q4

REPORT INFORMATION
  Report Type: Spontaneous
  Country: CN (occurrence: CN)
  Receive Date: 20211001
  Receipt Date: 20211001
  Transmission Date: 20220303
  Serious: Yes (Hospitalization, Other)
  Sender: FDA-Public Use
  Company Number: CN-LUPIN PHARMACEUTICALS INC.-2021-18507

PATIENT
  Age: 72 Year
  Sex: Female

DRUGS (5)
  1. LEVOFLOXACIN [Suspect]
     Active Substance: LEVOFLOXACIN
     Indication: Evidence based treatment
     Dosage: UNK (FOR ABOUT ONE WEEK WHENEVER NEEDED)
     Route: 065
  2. VORICONAZOLE [Suspect]
     Active Substance: VORICONAZOLE
     Indication: Pneumonia fungal
     Dosage: 200 MILLIGRAM, BID
     Route: 065
     Dates: start: 201904
  3. CEFTRIAXONE SODIUM\TAZOBACTAM SODIUM [Suspect]
     Active Substance: CEFTRIAXONE SODIUM\TAZOBACTAM SODIUM
     Indication: Evidence based treatment
     Dosage: UNK (FOR ABOUT ONE WEEK WHENEVER NEEDED)
     Route: 065
  4. BIAPENEM [Suspect]
     Active Substance: BIAPENEM
     Indication: Evidence based treatment
     Dosage: UNK (FOR ABOUT ONE WEEK WHENEVER NEEDED)
     Route: 065
  5. AMPHOTERICIN B [Suspect]
     Active Substance: AMPHOTERICIN B
     Indication: Pneumonia fungal
     Dosage: 12.5 MILLIGRAM (VIA A NEBULISER)
     Route: 065
     Dates: start: 201904

REACTIONS (3)
  - Pneumonia fungal [Recovering/Resolving]
  - Drug-induced liver injury [Recovered/Resolved]
  - Anaemia [Recovering/Resolving]

NARRATIVE: CASE EVENT DATE: 20190101
